FAERS Safety Report 4889171-0 (Version None)
Quarter: 2005Q4

REPORT INFORMATION
  Report Type: 
  Country: None (occurrence: None)
  Receive Date: 20051215
  Receipt Date: 20050124
  Transmission Date: 20060501
  Serious: Yes (Hospitalization, Other)
  Sender: FDA-Public Use
  Company Number: 2004106472

PATIENT
  Age: 82 Year
  Sex: Male

DRUGS (4)
  1. BEXTRA [Suspect]
     Indication: ARTHRALGIA
     Dosage: 20 MG (20 MG, 1 IN 1 D), ORAL
     Route: 048
     Dates: start: 20040401, end: 20041001
  2. RISEDRONATE SODIUM (RISEDRONATE SODIUM) [Concomitant]
  3. DIGOXIN [Concomitant]
  4. ORCIPRENALINE SULFATE (ORCIPRENALINE SULFATE) [Concomitant]

REACTIONS (5)
  - DUODENAL ULCER [None]
  - FAECES DISCOLOURED [None]
  - GASTROINTESTINAL HAEMORRHAGE [None]
  - HAEMATEMESIS [None]
  - MELAENA [None]
